FAERS Safety Report 5739364-5 (Version None)
Quarter: 2008Q2

REPORT INFORMATION
  Report Type: 
  Country: None (occurrence: None)
  Receive Date: 20080515
  Receipt Date: 20080512
  Transmission Date: 20081010
  Serious: Yes (Other)
  Sender: FDA-Public Use
  Company Number: US-PFIZER INC-2008040770

PATIENT
  Sex: Male
  Weight: 69.09 kg

DRUGS (7)
  1. VIAGRA [Suspect]
     Indication: ERECTILE DYSFUNCTION
  2. CARVEDILOL [Concomitant]
  3. LANOXIN [Concomitant]
  4. AVAPRO [Concomitant]
  5. INSPRA [Concomitant]
  6. AMIODARONE HCL [Concomitant]
  7. WARFARIN SODIUM [Concomitant]

REACTIONS (2)
  - NEOPLASM MALIGNANT [None]
  - PROSTATIC SPECIFIC ANTIGEN INCREASED [None]
